FAERS Safety Report 20855698 (Version 1)
Quarter: 2022Q2

REPORT INFORMATION
  Report Type: Spontaneous
  Country: US (occurrence: US)
  Receive Date: 20220520
  Receipt Date: 20220520
  Transmission Date: 20220721
  Serious: Yes (Hospitalization, Other)
  Sender: FDA-Public Use
  Company Number: US-PFIZER INC-202200700091

PATIENT
  Age: 64 Year
  Sex: Female

DRUGS (1)
  1. IBRANCE [Suspect]
     Active Substance: PALBOCICLIB
     Dosage: 125 MG, CYCLIC [TAKE 1 TABLET DAILY FOR 21 DAYS ON FOLLOWED BY 7 DAYS OFF]
     Dates: start: 20220312

REACTIONS (3)
  - Pain [Not Recovered/Not Resolved]
  - Pulmonary oedema [Unknown]
  - Loss of personal independence in daily activities [Unknown]
